FAERS Safety Report 13861971 (Version 1)
Quarter: 2017Q3

REPORT INFORMATION
  Report Type: Other
  Country: GB (occurrence: TT)
  Receive Date: 20170811
  Receipt Date: 20170811
  Transmission Date: 20171127
  Serious: Yes (Other)
  Sender: FDA-Public Use
  Company Number: TT-INTERNATIONAL MEDICATION SYSTEMS, LIMITED-2024533

PATIENT
  Age: 51 Year
  Sex: Female

DRUGS (6)
  1. HYDROCORTISONE. [Concomitant]
     Active Substance: HYDROCORTISONE
     Route: 042
  2. CHLORPHENAMINE [Concomitant]
     Active Substance: CHLORPHENIRAMINE MALEATE
     Route: 042
  3. RANITIDINE. [Concomitant]
     Active Substance: RANITIDINE
     Route: 042
  4. ASPIRIN. [Concomitant]
     Active Substance: ASPIRIN
  5. ULTRAVIST [Concomitant]
     Active Substance: IOPROMIDE
  6. EPINEPHRINE; ADVANCED CARDIAC LIFE SUPPORT (ACLS) PROTOCOL [Suspect]
     Active Substance: EPINEPHRINE
     Indication: ANAPHYLACTIC REACTION
     Route: 042

REACTIONS (1)
  - Stress cardiomyopathy [Recovering/Resolving]
